FAERS Safety Report 12279034 (Version 2)
Quarter: 2016Q2

REPORT INFORMATION
  Report Type: Report from Study
  Country: PK (occurrence: PK)
  Receive Date: 20160418
  Receipt Date: 20160421
  Transmission Date: 20160815
  Serious: Yes (Hospitalization)
  Sender: FDA-Public Use
  Company Number: PHHY2016PK050290

PATIENT
  Age: 74 Year
  Sex: Male

DRUGS (2)
  1. DIOVAN [Suspect]
     Active Substance: VALSARTAN
     Indication: HYPERTENSION
     Dosage: 1 DF, QD
     Route: 048
     Dates: start: 20100413, end: 20150210
  2. NORVASC [Concomitant]
     Active Substance: AMLODIPINE BESYLATE
     Indication: PRODUCT USED FOR UNKNOWN INDICATION
     Dosage: 0.5 DF, QD
     Route: 065

REACTIONS (7)
  - Pneumonia [Unknown]
  - Dysphagia [Recovered/Resolved]
  - Altered state of consciousness [Recovered/Resolved with Sequelae]
  - Myocardial infarction [Unknown]
  - Fatigue [Unknown]
  - Pyrexia [Recovered/Resolved with Sequelae]
  - Musculoskeletal pain [Unknown]

NARRATIVE: CASE EVENT DATE: 20150209
